FAERS Safety Report 25163251 (Version 1)
Quarter: 2025Q2

REPORT INFORMATION
  Report Type: Spontaneous
  Country: GB (occurrence: GB)
  Receive Date: 20250404
  Receipt Date: 20250404
  Transmission Date: 20250716
  Serious: Yes (Hospitalization)
  Sender: NOVARTIS
  Company Number: GB-002147023-NVSC2025GB054335

PATIENT
  Age: 50 Year
  Sex: Male

DRUGS (2)
  1. LEQVIO [Suspect]
     Active Substance: INCLISIRAN SODIUM
     Indication: Product used for unknown indication
     Route: 065
     Dates: start: 202305
  2. LEQVIO [Suspect]
     Active Substance: INCLISIRAN SODIUM
     Route: 065
     Dates: start: 202405

REACTIONS (5)
  - Jaundice [Unknown]
  - Liver function test increased [Unknown]
  - Influenza [Unknown]
  - Oedema peripheral [Unknown]
  - Rash [Unknown]
